FAERS Safety Report 22076352 (Version 1)
Quarter: 2023Q1

REPORT INFORMATION
  Report Type: Spontaneous
  Country: IE (occurrence: IE)
  Receive Date: 20230309
  Receipt Date: 20230309
  Transmission Date: 20230418
  Serious: Yes (Hospitalization)
  Sender: FDA-Public Use
  Company Number: IE-NOVOPROD-1034956

PATIENT
  Age: 63 Year
  Sex: Female

DRUGS (1)
  1. VAGIFEM [Suspect]
     Active Substance: ESTRADIOL
     Indication: Vulvovaginal dryness
     Dosage: UNK(1 DAILY (STARTING DOSE)QD)
     Route: 067
     Dates: start: 20230222, end: 20230225

REACTIONS (5)
  - Uterine rupture [Unknown]
  - Arterial injury [Unknown]
  - Circulatory collapse [Unknown]
  - Vaginal haemorrhage [Unknown]
  - Application site injury [Unknown]

NARRATIVE: CASE EVENT DATE: 20230224
